FAERS Safety Report 23467087 (Version 1)
Quarter: 2024Q1

REPORT INFORMATION
  Report Type: Spontaneous
  Country: GB (occurrence: GB)
  Receive Date: 20240201
  Receipt Date: 20240201
  Transmission Date: 20240410
  Serious: Yes (Other)
  Sender: FDA-Public Use
  Company Number: None

PATIENT
  Age: 44 Year
  Sex: Female
  Weight: 62 kg

DRUGS (2)
  1. VUMERITY [Suspect]
     Active Substance: DIROXIMEL FUMARATE
     Indication: Relapsing multiple sclerosis
     Dosage: 231MG TWICE DAILY FOR ONE WEEK THEN TWO TWICE DAILY THEREAFTER. I ONLY TOOK 1 TABLET.; ;
     Route: 050
     Dates: start: 20240123, end: 20240123
  2. VITAMIN D [Concomitant]
     Active Substance: VITAMIN D NOS
     Indication: Relapsing multiple sclerosis
     Route: 050

REACTIONS (17)
  - Feeling abnormal [Recovered/Resolved]
  - Abnormal sensation in eye [Recovered/Resolved]
  - Mental impairment [Recovered/Resolved]
  - Feeling abnormal [Recovered/Resolved]
  - Malaise [Recovered/Resolved]
  - Pruritus [Recovered/Resolved]
  - Paraesthesia [Recovered/Resolved]
  - Tremor [Recovered/Resolved]
  - Abdominal pain upper [Recovered/Resolved]
  - Asthenia [Recovered/Resolved]
  - Muscular weakness [Recovered/Resolved]
  - Paraesthesia oral [Recovered/Resolved]
  - Chest pain [Recovered/Resolved]
  - Dyspnoea [Recovered/Resolved]
  - Dizziness [Recovered/Resolved]
  - Eye pain [Recovered/Resolved]
  - Headache [Recovered/Resolved]

NARRATIVE: CASE EVENT DATE: 20240123
